FAERS Safety Report 6933271-8 (Version None)
Quarter: 2010Q3

REPORT INFORMATION
  Report Type: 
  Country: None (occurrence: None)
  Receive Date: 20100820
  Receipt Date: 20100810
  Transmission Date: 20110219
  Serious: Yes (Hospitalization)
  Sender: FDA-Public Use
  Company Number: JP-JNJFOC-20100105757

PATIENT
  Sex: Male
  Weight: 60 kg

DRUGS (24)
  1. FENTANYL CITRATE [Suspect]
     Indication: BACK PAIN
     Route: 062
  2. FENTANYL CITRATE [Suspect]
     Route: 062
  3. FENTANYL CITRATE [Suspect]
     Route: 062
  4. FENTANYL CITRATE [Suspect]
     Route: 062
  5. FENTANYL CITRATE [Suspect]
     Route: 062
  6. FENTANYL CITRATE [Suspect]
     Route: 062
  7. FENTANYL CITRATE [Suspect]
     Indication: OSTEOARTHRITIS
     Route: 062
  8. FENTANYL CITRATE [Suspect]
     Route: 062
  9. FENTANYL CITRATE [Suspect]
     Route: 062
  10. FENTANYL CITRATE [Suspect]
     Route: 062
  11. FENTANYL CITRATE [Suspect]
     Route: 062
  12. FENTANYL CITRATE [Suspect]
     Route: 062
  13. MAGLAX [Concomitant]
     Indication: CONSTIPATION
     Route: 048
  14. TRIAZOLAM [Concomitant]
     Indication: INSOMNIA
     Route: 048
  15. MECOBALAMIN [Concomitant]
     Indication: PAIN
     Route: 048
  16. RENIVACE [Concomitant]
     Indication: HYPERTENSION
     Route: 048
  17. DIGOSIN [Concomitant]
     Indication: ATRIAL FIBRILLATION
     Route: 048
  18. WARFARIN SODIUM [Concomitant]
     Indication: ATRIAL FIBRILLATION
     Route: 048
  19. RABEPRAZOLE SODIUM [Concomitant]
     Indication: GASTRITIS
     Route: 048
  20. CRESTOR [Concomitant]
     Indication: HYPERLIPIDAEMIA
     Route: 048
  21. VASOLAN [Concomitant]
     Indication: CONGESTIVE CARDIOMYOPATHY
     Route: 048
  22. ARTIFICIAL TEARS NOS [Concomitant]
     Indication: DRY EYE
     Route: 031
  23. TULOBUTEROL [Concomitant]
     Indication: CHRONIC OBSTRUCTIVE PULMONARY DISEASE
     Route: 062
  24. AMARYL [Concomitant]
     Indication: DIABETES MELLITUS
     Route: 048

REACTIONS (2)
  - DIABETES MELLITUS [None]
  - TESTIS CANCER [None]
